FAERS Safety Report 9235963 (Version 3)
Quarter: 2013Q2

REPORT INFORMATION
  Report Type: Spontaneous
  Country: JP (occurrence: JP)
  Receive Date: 20130417
  Receipt Date: 20130615
  Transmission Date: 20140414
  Serious: Yes (Hospitalization, Disabling)
  Sender: FDA-Public Use
  Company Number: JP-GENZYME-CERZ-1002901

PATIENT
  Age: 52 Year
  Sex: Male
  Weight: 35 kg

DRUGS (2)
  1. CEREZYME [Suspect]
     Indication: GAUCHER^S DISEASE
     Dosage: 34.3 U/KG, Q2W
     Route: 042
     Dates: start: 19960914, end: 20120827
  2. L-DOPA [Concomitant]
     Indication: PARKINSON^S DISEASE
     Dosage: UNK
     Route: 065
     Dates: start: 2002

REACTIONS (1)
  - Parkinson^s disease [Not Recovered/Not Resolved]
